FAERS Safety Report 5614864-7 (Version None)
Quarter: 2008Q1

REPORT INFORMATION
  Report Type: 
  Country: None (occurrence: None)
  Receive Date: 20080131
  Receipt Date: 20080124
  Transmission Date: 20080703
  Serious: Yes (Other)
  Sender: FDA-Public Use
  Company Number: 2008-00471

PATIENT
  Age: 37 Year
  Sex: Female
  Weight: 136 kg

DRUGS (6)
  1. KENTERA [Suspect]
     Indication: URINARY INCONTINENCE
     Dosage: TRANSDERMAL
     Route: 062
     Dates: start: 20071014, end: 20071024
  2. CETIRIZINE HCL [Concomitant]
  3. DIAZEPAM [Concomitant]
  4. MEBEVERINE                     (MEBEVERINE) [Concomitant]
  5. OMEPRAZOLE [Concomitant]
  6. PAROXETINE HCL [Concomitant]

REACTIONS (2)
  - APPLICATION SITE REACTION [None]
  - MYALGIA [None]
